FAERS Safety Report 16097821 (Version 14)
Quarter: 2019Q3

REPORT INFORMATION
  Report Type: Report from Study
  Country: DE (occurrence: DE)
  Receive Date: 20190320
  Receipt Date: 20190927
  Transmission Date: 20191004
  Serious: Yes (Death, Life-Threatening, Hospitalization, Disabling, Other)
  Sender: FDA-Public Use
  Company Number: DE-GILEAD-2019-0386178

PATIENT
  Age: 48 Year
  Sex: Male
  Weight: 75.8 kg

DRUGS (48)
  1. PANTOZOL [Concomitant]
     Active Substance: PANTOPRAZOLE SODIUM
  2. COTRIM FORTE [Concomitant]
     Active Substance: SULFAMETHOXAZOLE\TRIMETHOPRIM
  3. VOMEX A [Concomitant]
     Active Substance: DIMENHYDRINATE
  4. STEROFUNDIN B [Concomitant]
  5. RANTICA [Concomitant]
  6. PALLADONE [Concomitant]
     Active Substance: HYDROMORPHONE HYDROCHLORIDE
  7. ACIC [ACICLOVIR] [Concomitant]
  8. AMPHOTERICIN B. [Concomitant]
     Active Substance: AMPHOTERICIN B
  9. PETHIDIN [Concomitant]
     Active Substance: MEPERIDINE
  10. IVEMEND [Concomitant]
     Active Substance: FOSAPREPITANT DIMEGLUMINE
  11. METHYLPREDNISOLONE. [Concomitant]
     Active Substance: METHYLPREDNISOLONE
     Dosage: 100 MG, QD
     Route: 048
     Dates: start: 20190124, end: 20190128
  12. METHYLPREDNISOLONE. [Concomitant]
     Active Substance: METHYLPREDNISOLONE
     Dosage: UNK
     Dates: start: 20190323
  13. LYRICA [Concomitant]
     Active Substance: PREGABALIN
  14. ZOVIRAX [Concomitant]
     Active Substance: ACYCLOVIR
  15. KALIUMCHLORID [Concomitant]
     Active Substance: POTASSIUM CHLORIDE
  16. HALDOL [Concomitant]
     Active Substance: HALOPERIDOL
  17. AXICABTAGENE CILOLEUCEL [Suspect]
     Active Substance: AXICABTAGENE CILOLEUCEL
     Indication: DIFFUSE LARGE B-CELL LYMPHOMA STAGE IV
     Dosage: 68 ML, ONCE
     Route: 042
     Dates: start: 20190218, end: 20190218
  18. DEXAMETHASONE. [Concomitant]
     Active Substance: DEXAMETHASONE
     Dosage: 40 MG, QD
     Dates: start: 20190131, end: 20190206
  19. PARACETAMOL [Concomitant]
     Active Substance: ACETAMINOPHEN
  20. TAVOR [FLUCONAZOLE] [Concomitant]
     Active Substance: FLUCONAZOLE
  21. TAVEGIL [CLEMASTINE] [Concomitant]
     Active Substance: CLEMASTINE
  22. DEXAMETHASONE. [Concomitant]
     Active Substance: DEXAMETHASONE
     Dosage: 40 UNK
     Dates: start: 20190226
  23. TILIDIN [Concomitant]
     Active Substance: NALOXONE HYDROCHLORIDE\TILIDINE HYDROCHLORIDE
  24. MESNA. [Concomitant]
     Active Substance: MESNA
  25. TAZOBAK [Concomitant]
  26. IBUPROFEN. [Concomitant]
     Active Substance: IBUPROFEN
  27. CYCLOPHOSPHAMIDE. [Suspect]
     Active Substance: CYCLOPHOSPHAMIDE
     Indication: BONE MARROW CONDITIONING REGIMEN
     Dosage: 960 MG, QD
     Route: 042
     Dates: start: 20190207, end: 20190209
  28. ALLOPURINOL. [Concomitant]
     Active Substance: ALLOPURINOL
  29. VALORAN [Concomitant]
  30. LASIX [Concomitant]
     Active Substance: FUROSEMIDE
  31. VANCOMYCIN [Concomitant]
     Active Substance: VANCOMYCIN
  32. PIPERACILLIN. [Concomitant]
     Active Substance: PIPERACILLIN SODIUM
  33. LOESNESIUM [Concomitant]
  34. KALINOR [POTASSIUM CHLORIDE] [Concomitant]
  35. NPLATE [Concomitant]
     Active Substance: ROMIPLOSTIM
  36. TAMIFLU [Concomitant]
     Active Substance: OSELTAMIVIR PHOSPHATE
  37. ACC AKUT [Concomitant]
     Active Substance: ACETYLCYSTEINE
  38. HYGROTON [Concomitant]
     Active Substance: CHLORTHALIDONE
  39. CLARITHROMYCIN. [Concomitant]
     Active Substance: CLARITHROMYCIN
  40. FLUDARABINE [Suspect]
     Active Substance: FLUDARABINE PHOSPHATE
     Indication: BONE MARROW CONDITIONING REGIMEN
     Dosage: 57.5 MG, QD
     Route: 042
     Dates: start: 20190207, end: 20190209
  41. DEKRISTOL [Concomitant]
     Active Substance: CHOLECALCIFEROL
  42. NOVALGIN (METAMIZOLE SODIUM) [Concomitant]
     Active Substance: METAMIZOLE SODIUM
  43. ZOFRAN [Concomitant]
     Active Substance: ONDANSETRON HYDROCHLORIDE
  44. NATRIUMCHLORIDE [Concomitant]
     Active Substance: SODIUM CHLORIDE
  45. LEVETIRACETAM. [Concomitant]
     Active Substance: LEVETIRACETAM
  46. RED BLOOD CELLS, CONCENTRATED [Concomitant]
     Active Substance: HUMAN RED BLOOD CELL
  47. BELOC [METOPROLOL SUCCINATE] [Concomitant]
     Active Substance: METOPROLOL SUCCINATE
  48. MOVICOL-HALF [Concomitant]

REACTIONS (18)
  - Blood bilirubin increased [Recovered/Resolved]
  - Tachycardia [Unknown]
  - Restlessness [Unknown]
  - Aphasia [Unknown]
  - Pneumonia influenzal [Fatal]
  - Cytokine release syndrome [Unknown]
  - Encephalopathy [Unknown]
  - Neurotoxicity [Not Recovered/Not Resolved]
  - Sepsis [Recovered/Resolved]
  - Somnolence [Unknown]
  - Tremor [Unknown]
  - Pyrexia [Recovered/Resolved]
  - Hypoxia [Unknown]
  - Pyrexia [Recovered/Resolved]
  - Vomiting [Unknown]
  - Haemophagocytic lymphohistiocytosis [Unknown]
  - Pyrexia [Recovered/Resolved]
  - Death [Fatal]

NARRATIVE: CASE EVENT DATE: 20190224
